FAERS Safety Report 6501969-1 (Version None)
Quarter: 2009Q4

REPORT INFORMATION
  Report Type: 
  Country: None (occurrence: None)
  Receive Date: 20091216
  Receipt Date: 20091207
  Transmission Date: 20100525
  Serious: Yes (Other)
  Sender: FDA-Public Use
  Company Number: PHHY2009GB15326

PATIENT
  Age: 44 Year
  Sex: Male

DRUGS (2)
  1. CLOZAPINE [Suspect]
     Dosage: UNK
     Route: 048
     Dates: start: 20010701, end: 20090104
  2. ZAPONEX [Suspect]
     Dosage: 600 MG PER DAY
     Route: 048
     Dates: start: 20090105

REACTIONS (3)
  - HAEMOGLOBIN DECREASED [None]
  - NEUTROPHIL COUNT DECREASED [None]
  - NON-HODGKIN'S LYMPHOMA [None]
